FAERS Safety Report 9169617 (Version 7)
Quarter: 2014Q3

REPORT INFORMATION
  Report Type: Report from Study
  Country: US (occurrence: US)
  Receive Date: 20130318
  Receipt Date: 20140703
  Transmission Date: 20150326
  Serious: Yes (Death, Hospitalization)
  Sender: FDA-Public Use
  Company Number: US-ACTELION-A-US2013-80432

PATIENT
  Age: 65 Year
  Sex: Female

DRUGS (2)
  1. TRACLEER [Suspect]
     Active Substance: BOSENTAN\BOSENTAN MONOHYDRATE
     Indication: PULMONARY ARTERIAL HYPERTENSION
     Dosage: UNK
     Route: 048
     Dates: end: 20140601
  2. SILDENAFIL [Concomitant]
     Active Substance: SILDENAFIL

REACTIONS (11)
  - Carbon dioxide abnormal [Unknown]
  - Cardiac failure congestive [Not Recovered/Not Resolved]
  - Condition aggravated [Not Recovered/Not Resolved]
  - Respiratory acidosis [Not Recovered/Not Resolved]
  - Tracheostomy [Unknown]
  - Unresponsive to stimuli [Unknown]
  - Fluid retention [Unknown]
  - Acute respiratory failure [Unknown]
  - Respiratory failure [Fatal]
  - Pulmonary oedema [Not Recovered/Not Resolved]
  - Pulmonary arterial hypertension [Not Recovered/Not Resolved]

NARRATIVE: CASE EVENT DATE: 20130217
